FAERS Safety Report 8032037-8 (Version None)
Quarter: 2012Q1

REPORT INFORMATION
  Report Type: 
  Country: None (occurrence: None)
  Receive Date: 20120109
  Receipt Date: 20110930
  Transmission Date: 20120608
  Serious: No
  Sender: FDA-Public Use
  Company Number: US-ABBOTT-11P-163-0861013-00

PATIENT
  Sex: Female
  Weight: 88.53 kg

DRUGS (1)
  1. VICODIN [Suspect]
     Indication: MIGRAINE
     Dates: start: 20110922, end: 20110930

REACTIONS (1)
  - DRUG INEFFECTIVE [None]
